FAERS Safety Report 6855201-X (Version None)
Quarter: 2010Q3

REPORT INFORMATION
  Report Type: 
  Country: None (occurrence: None)
  Receive Date: 20100718
  Receipt Date: 20100715
  Transmission Date: 20110219
  Serious: Yes (Hospitalization, Other)
  Sender: FDA-Public Use
  Company Number: ZA-BRISTOL-MYERS SQUIBB COMPANY-15064595

PATIENT
  Age: 60 Year
  Sex: Male

DRUGS (17)
  1. BLINDED: SAXAGLIPTIN [Suspect]
     Indication: TYPE 2 DIABETES MELLITUS
     Dosage: STUDY DRUG TAKEN 17FEB2010-02MAR2010, INTERRUPTED 03MAR2010-14APR2010, RESTARTED 15APR2010-20APR2010
     Route: 048
     Dates: start: 20090806
  2. BLINDED: PLACEBO [Suspect]
     Indication: TYPE 2 DIABETES MELLITUS
     Dosage: STUDY DRUG TAKEN 17FEB2010-02MAR2010, INTERRUPTED 03MAR2010-14APR2010, RESTARTED 15APR2010-20APR2010
     Route: 048
     Dates: start: 20090806
  3. INSULIN [Suspect]
     Indication: TYPE 2 DIABETES MELLITUS
     Dates: start: 20090806
  4. SENOKOT [Concomitant]
     Dates: start: 20080601
  5. DISPRIN [Concomitant]
     Dates: start: 20080101
  6. TREPILINE [Concomitant]
     Dates: start: 20060101
  7. NORVASC [Concomitant]
     Indication: HYPERTENSION
     Dates: start: 20080601
  8. ENALAPRIL MALEATE [Concomitant]
     Indication: HYPERTENSION
     Dates: start: 19950101
  9. FUROSEMIDE [Concomitant]
     Dates: start: 20081001
  10. HYDRALAZINE HCL [Concomitant]
     Dates: start: 20070601
  11. PHENERGAN [Concomitant]
     Indication: ECZEMA
     Dates: start: 20090101
  12. SIMVASTIN [Concomitant]
     Dates: start: 20081001
  13. AMIKACIN [Concomitant]
     Route: 042
     Dates: start: 20100409, end: 20100409
  14. CIPRO [Concomitant]
     Dates: start: 20100531, end: 20100606
  15. FLAGYL [Concomitant]
     Dates: start: 20100531, end: 20100606
  16. DOLOROL FORTE [Concomitant]
     Dates: start: 20100531, end: 20100610
  17. MORPHINE [Concomitant]
     Dates: start: 20100530, end: 20100601

REACTIONS (6)
  - ABDOMINAL PAIN [None]
  - CHOLANGITIS ACUTE [None]
  - JAUNDICE [None]
  - PANCREATITIS CHRONIC [None]
  - RENAL FAILURE ACUTE [None]
  - SEPTIC SHOCK [None]
